FAERS Safety Report 4552677-8 (Version None)
Quarter: 2005Q1

REPORT INFORMATION
  Report Type: 
  Country: None (occurrence: None)
  Receive Date: 20050114
  Receipt Date: 20041222
  Transmission Date: 20050727
  Serious: Yes (Hospitalization)
  Sender: FDA-Public Use
  Company Number: PHBS2004JP17337

PATIENT
  Age: 26 Year
  Sex: Female

DRUGS (4)
  1. PREDNISOLONE [Concomitant]
     Indication: SYSTEMIC LUPUS ERYTHEMATOSUS
     Dosage: 60 MG/DAY
     Route: 048
  2. CYCLOSPORINE [Suspect]
     Indication: LUPUS NEPHRITIS
     Dosage: 100 MG/D
     Route: 065
     Dates: start: 20040305, end: 20040101
  3. CYCLOSPORINE [Suspect]
     Dosage: 150 MG/D
     Route: 065
     Dates: start: 20040101, end: 20040101
  4. VALSARTAN [Suspect]

REACTIONS (7)
  - BLEEDING TIME PROLONGED [None]
  - BRAIN NATRIURETIC PEPTIDE INCREASED [None]
  - CARDIAC FAILURE [None]
  - DILATATION VENTRICULAR [None]
  - DRUG LEVEL INCREASED [None]
  - DYSPNOEA [None]
  - EJECTION FRACTION DECREASED [None]
